FAERS Safety Report 19001728 (Version 1)
Quarter: 2021Q1

REPORT INFORMATION
  Report Type: Spontaneous
  Country: US (occurrence: US)
  Receive Date: 20210312
  Receipt Date: 20210312
  Transmission Date: 20210420
  Serious: No
  Sender: FDA-Public Use
  Company Number: US-FARMAPROD-202012-1784

PATIENT
  Sex: Male

DRUGS (3)
  1. OXERVATE [Suspect]
     Active Substance: CENEGERMIN-BKBJ
     Indication: NEUROTROPHIC KERATOPATHY
     Route: 047
     Dates: start: 20191230, end: 20200128
  2. OXERVATE [Suspect]
     Active Substance: CENEGERMIN-BKBJ
     Indication: ULCERATIVE KERATITIS
     Dates: start: 20200204, end: 20200306
  3. OXERVATE [Suspect]
     Active Substance: CENEGERMIN-BKBJ
     Dates: start: 20201110

REACTIONS (2)
  - Eye pain [Unknown]
  - Intentional product misuse [Unknown]
